FAERS Safety Report 12448367 (Version 3)
Quarter: 2016Q3

REPORT INFORMATION
  Report Type: Spontaneous
  Country: BE (occurrence: FR)
  Receive Date: 20160608
  Receipt Date: 20160714
  Transmission Date: 20161109
  Serious: Yes (Death, Hospitalization, Other)
  Sender: FDA-Public Use
  Company Number: BE-BAYER-2016-105925

PATIENT
  Age: 83 Year
  Sex: Male
  Weight: 80.6 kg

DRUGS (10)
  1. PRAVASTATIN. [Concomitant]
     Active Substance: PRAVASTATIN
  2. XOFIGO [Suspect]
     Active Substance: RADIUM RA-223 DICHLORIDE
     Indication: PROSTATE CANCER METASTATIC
     Dosage: 4.15 MBQ, UNK
     Route: 042
     Dates: start: 20160401, end: 20160401
  3. OXYGEN. [Concomitant]
     Active Substance: OXYGEN
     Dosage: UNK
     Dates: start: 2014
  4. ENANTONE LP [Concomitant]
     Active Substance: LEUPROLIDE ACETATE
  5. XOFIGO [Suspect]
     Active Substance: RADIUM RA-223 DICHLORIDE
     Indication: PROSTATE CANCER METASTATIC
     Dosage: UNK
     Route: 042
     Dates: start: 201601
  6. DENOSUMAB [Concomitant]
     Active Substance: DENOSUMAB
  7. XOFIGO [Suspect]
     Active Substance: RADIUM RA-223 DICHLORIDE
     Indication: METASTASES TO BONE
     Dosage: 4.15 MBQ, UNK
     Route: 042
     Dates: start: 20160205, end: 20160205
  8. XOFIGO [Suspect]
     Active Substance: RADIUM RA-223 DICHLORIDE
     Indication: PROSTATE CANCER METASTATIC
     Dosage: 4.15 MBQ, UNK
     Route: 042
     Dates: start: 20160304, end: 20160304
  9. KARDEGIC [Concomitant]
     Active Substance: ASPIRIN LYSINE
  10. TESTOSTERONE. [Concomitant]
     Active Substance: TESTOSTERONE

REACTIONS (9)
  - General physical health deterioration [None]
  - Death [Fatal]
  - Lymphangiosis carcinomatosa [None]
  - Prostatic specific antigen increased [None]
  - Bronchitis [None]
  - Body temperature increased [None]
  - Musculoskeletal chest pain [None]
  - Metastases to bone [None]
  - Dyspnoea [None]

NARRATIVE: CASE EVENT DATE: 201605
